FAERS Safety Report 11444674 (Version 1)
Quarter: 2015Q3

REPORT INFORMATION
  Report Type: Spontaneous
  Country: US (occurrence: None)
  Receive Date: 20150831
  Receipt Date: 20150831
  Transmission Date: 20151125
  Serious: Yes (Other)
  Sender: FDA-Public Use
  Company Number: KAD201508-002950

PATIENT
  Age: 51 Year
  Sex: Male

DRUGS (8)
  1. CARVEDILOL. [Concomitant]
     Active Substance: CARVEDILOL
  2. NEXIUM [Concomitant]
     Active Substance: ESOMEPRAZOLE MAGNESIUM
  3. FUROSEMIDE. [Concomitant]
     Active Substance: FUROSEMIDE
  4. VIEKIRA PAK [Suspect]
     Active Substance: DASABUVIR\OMBITASVIR\PARITAPREVIR\RITONAVIR
     Indication: HEPATITIS C
     Route: 048
     Dates: start: 20150607
  5. SPIRONOLACTONE. [Concomitant]
     Active Substance: SPIRONOLACTONE
  6. FOLIC ACID. [Concomitant]
     Active Substance: FOLIC ACID
  7. LYRICA [Concomitant]
     Active Substance: PREGABALIN
  8. RIBAVIRIN (RIBAVIRIN) [Suspect]
     Active Substance: RIBAVIRIN
     Indication: HEPATITIS C
     Dosage: TABLET; 600 MG IN THE MORNING, 400 MG IN THE EVENING, ORAL
     Route: 048
     Dates: start: 20150607

REACTIONS (5)
  - Feeling cold [None]
  - Hypotension [None]
  - Fatigue [None]
  - Disease progression [None]
  - Hepatitis C [None]

NARRATIVE: CASE EVENT DATE: 201508
